FAERS Safety Report 15929810 (Version 1)
Quarter: 2019Q1

REPORT INFORMATION
  Report Type: Spontaneous
  Country: US (occurrence: US)
  Receive Date: 20190206
  Receipt Date: 20190206
  Transmission Date: 20190417
  Serious: Yes (Other)
  Sender: FDA-Public Use
  Company Number: US-ALLERGAN-1904943US

PATIENT
  Sex: Male

DRUGS (3)
  1. VRAYLAR [Suspect]
     Active Substance: CARIPRAZINE
     Indication: SCHIZOPHRENIA
     Dosage: 1.5 MG, QD
     Route: 048
     Dates: start: 20181123, end: 20181125
  2. OLANZAPINE. [Concomitant]
     Active Substance: OLANZAPINE
     Indication: SCHIZOPHRENIA
     Dosage: 20 MG, UNK
     Route: 048
  3. RISPERDAL [Concomitant]
     Active Substance: RISPERIDONE
     Indication: SCHIZOPHRENIA
     Dosage: 1 MG, BID
     Route: 048

REACTIONS (3)
  - Intentional dose omission [Unknown]
  - Schizophrenia [Unknown]
  - Homicide [Unknown]

NARRATIVE: CASE EVENT DATE: 20181225
